FAERS Safety Report 4572467-X (Version None)
Quarter: 2005Q1

REPORT INFORMATION
  Report Type: 
  Country: None (occurrence: None)
  Receive Date: 20050207
  Receipt Date: 20050126
  Transmission Date: 20050727
  Serious: Yes (Hospitalization)
  Sender: FDA-Public Use
  Company Number: EE-MERCK-0501HUN00014

PATIENT
  Age: 70 Year
  Sex: Female
  Weight: 75 kg

DRUGS (1)
  1. FOSAMAX [Suspect]
     Indication: OSTEOPOROSIS
     Route: 048
     Dates: start: 20030120, end: 20040201

REACTIONS (4)
  - BREAST ABSCESS [None]
  - BREAST CANCER FEMALE [None]
  - BREAST PAIN [None]
  - MYALGIA [None]
